FAERS Safety Report 9005668 (Version 1)
Quarter: 2013Q1

REPORT INFORMATION
  Report Type: Spontaneous
  Country: US (occurrence: US)
  Receive Date: 20130109
  Receipt Date: 20130109
  Transmission Date: 20140127
  Serious: No
  Sender: FDA-Public Use
  Company Number: US-ABBOTT-12P-163-1005978-00

PATIENT
  Sex: Female
  Weight: 58.57 kg

DRUGS (9)
  1. VICODIN 5/500 [Suspect]
     Indication: INTERVERTEBRAL DISC DISORDER
     Dosage: 5/500 MG TWICE DAILY AS NEEDED
     Route: 048
  2. VICODIN 5/500 [Suspect]
     Indication: PAIN
  3. AMPYRA [Suspect]
     Indication: MULTIPLE SCLEROSIS
     Route: 048
     Dates: start: 201106
  4. ATIVAN [Suspect]
     Indication: ANXIETY
     Dosage: 0.5 MG TWICE DAILY AS NEEDED
  5. WELLBUTRIN [Concomitant]
     Indication: EX-TOBACCO USER
  6. WELLBUTRIN [Concomitant]
     Indication: DEPRESSION
     Dates: start: 20120621
  7. COPAXONE [Concomitant]
     Indication: PRODUCT USED FOR UNKNOWN INDICATION
  8. IBUPROFEN [Concomitant]
     Indication: PRODUCT USED FOR UNKNOWN INDICATION
  9. DEXILANT [Concomitant]
     Indication: PRODUCT USED FOR UNKNOWN INDICATION

REACTIONS (1)
  - Depression [Recovering/Resolving]
